FAERS Safety Report 17510575 (Version 1)
Quarter: 2020Q1

REPORT INFORMATION
  Report Type: Spontaneous
  Country: US (occurrence: US)
  Receive Date: 20200306
  Receipt Date: 20200306
  Transmission Date: 20200409
  Serious: Yes (Hospitalization, Other)
  Sender: FDA-Public Use
  Company Number: US-SHIRE-US202008062

PATIENT
  Sex: Male

DRUGS (1)
  1. FEIBA NF [Suspect]
     Active Substance: ANTI-INHIBITOR COAGULANT COMPLEX
     Indication: HAEMOPHILIA A WITH ANTI FACTOR VIII
     Dosage: 3 DOSAGE FORM (50 UNITS PER KG TO 75 UNITS PER KG)
     Route: 051
     Dates: start: 202001

REACTIONS (4)
  - Traumatic haematoma [Unknown]
  - Platelet disorder [Unknown]
  - Activated partial thromboplastin time prolonged [Unknown]
  - Incorrect dose administered [Unknown]
